FAERS Safety Report 21102503 (Version 3)
Quarter: 2023Q1

REPORT INFORMATION
  Report Type: Spontaneous
  Country: US (occurrence: US)
  Receive Date: 20220719
  Receipt Date: 20230117
  Transmission Date: 20230417
  Serious: No
  Sender: FDA-Public Use
  Company Number: US-AMGEN-USASP2022122005

PATIENT
  Age: 71 Year
  Sex: Female

DRUGS (3)
  1. ENBREL [Suspect]
     Active Substance: ETANERCEPT
     Indication: Intervertebral disc degeneration
     Dosage: 50 MILLIGRAM, QWK
     Route: 058
     Dates: start: 20220303
  2. ENBREL [Suspect]
     Active Substance: ETANERCEPT
     Indication: Off label use
     Dosage: 50 MILLIGRAM, QWK
     Route: 058
  3. CORTAZONE [Concomitant]
     Dosage: UNK
     Route: 065

REACTIONS (3)
  - Device difficult to use [Not Recovered/Not Resolved]
  - Wrong technique in product usage process [Unknown]
  - Off label use [Unknown]

NARRATIVE: CASE EVENT DATE: 20220715
